FAERS Safety Report 5201942-X (Version None)
Quarter: 2007Q1

REPORT INFORMATION
  Report Type: 
  Country: None (occurrence: None)
  Receive Date: 20070104
  Receipt Date: 20061222
  Transmission Date: 20070707
  Serious: Yes (Other)
  Sender: FDA-Public Use
  Company Number: 04-02-0272

PATIENT
  Age: 46 Year
  Sex: Male

DRUGS (2)
  1. FLUOXETINE [Suspect]
     Indication: OBSESSIVE-COMPULSIVE DISORDER
     Dosage: 20 MG (1 IN 1 D)
     Route: 048
     Dates: start: 19991101, end: 19990101
  2. HALOPERIDOL [Concomitant]

REACTIONS (10)
  - APATHY [None]
  - CONDITION AGGRAVATED [None]
  - DECREASED APPETITE [None]
  - DEPRESSED MOOD [None]
  - EARLY MORNING AWAKENING [None]
  - FATIGUE [None]
  - GAIT DISTURBANCE [None]
  - HUNTINGTON'S CHOREA [None]
  - SLEEP DISORDER [None]
  - TEARFULNESS [None]
